FAERS Safety Report 7683251-2 (Version None)
Quarter: 2011Q3

REPORT INFORMATION
  Report Type: 
  Country: None (occurrence: None)
  Receive Date: 20110815
  Receipt Date: 20110808
  Transmission Date: 20111222
  Serious: Yes (Death, Other)
  Sender: FDA-Public Use
  Company Number: US-CEPHALON-2009013098

PATIENT
  Age: 37 Year
  Sex: Male

DRUGS (3)
  1. PROVIGIL [Suspect]
     Indication: NARCOLEPSY
     Route: 048
  2. AMANTADINE HCL [Concomitant]
  3. NUVIGIL [Suspect]
     Indication: NARCOLEPSY
     Route: 048

REACTIONS (2)
  - CARDIOMEGALY [None]
  - SUDDEN DEATH [None]
